FAERS Safety Report 6530865-9 (Version None)
Quarter: 2010Q1

REPORT INFORMATION
  Report Type: 
  Country: None (occurrence: None)
  Receive Date: 20100108
  Receipt Date: 20090415
  Transmission Date: 20100710
  Serious: No
  Sender: FDA-Public Use
  Company Number: A0780019A

PATIENT
  Age: 60 Year
  Sex: Male

DRUGS (5)
  1. LOVAZA [Suspect]
     Dosage: 2G TWICE PER DAY
     Route: 048
     Dates: start: 20090218
  2. ROPINIROLE [Concomitant]
  3. SINGULAIR [Concomitant]
  4. ALLEGRA [Concomitant]
  5. ASTELIN [Concomitant]

REACTIONS (1)
  - FAECES DISCOLOURED [None]
